FAERS Safety Report 23596822 (Version 2)
Quarter: 2024Q1

REPORT INFORMATION
  Report Type: Spontaneous
  Country: US (occurrence: US)
  Receive Date: 20240305
  Receipt Date: 20240306
  Transmission Date: 20240409
  Serious: Yes (Other)
  Sender: FDA-Public Use
  Company Number: US-PFIZER INC-202400056542

PATIENT
  Sex: Male

DRUGS (1)
  1. CHANTIX [Suspect]
     Active Substance: VARENICLINE TARTRATE
     Dosage: UNK
     Dates: end: 2015

REACTIONS (6)
  - Suicidal ideation [Unknown]
  - Hallucination, auditory [Unknown]
  - Gingival cancer [Unknown]
  - Nightmare [Unknown]
  - Screaming [Unknown]
  - Aggression [Unknown]
